FAERS Safety Report 25936018 (Version 1)
Quarter: 2025Q4

REPORT INFORMATION
  Report Type: Spontaneous
  Country: US (occurrence: None)
  Receive Date: 20251017
  Receipt Date: 20251017
  Transmission Date: 20260119
  Serious: Yes (Hospitalization)
  Sender: FDA-CTU
  Company Number: None

PATIENT
  Age: 67 Year
  Sex: Female

DRUGS (10)
  1. SKYRIZI [Suspect]
     Active Substance: RISANKIZUMAB-RZAA
     Indication: Psoriasis
     Dosage: INJECT 150 MG UNDER THE SKIN (SUBCUTANEOUS INJECTION) EVERY 3 MONTHS STARTING WEEK 4.
     Route: 058
     Dates: start: 20250823
  2. ALEVE [Concomitant]
     Active Substance: NAPROXEN SODIUM
  3. BUDES/FORMOT [Concomitant]
  4. BUDESONIDE [Concomitant]
     Active Substance: BUDESONIDE
  5. DILTIAZEM [Concomitant]
     Active Substance: DILTIAZEM
  6. DOFETILIDE [Concomitant]
     Active Substance: DOFETILIDE
  7. DUONEB [Concomitant]
     Active Substance: ALBUTEROL SULFATE\IPRATROPIUM BROMIDE
  8. FLONASE [Concomitant]
     Active Substance: FLUTICASONE PROPIONATE
  9. LEVOTHYROXINE [Concomitant]
     Active Substance: LEVOTHYROXINE
  10. LOSARTAN [Concomitant]
     Active Substance: LOSARTAN

REACTIONS (2)
  - Bronchitis [None]
  - Therapy cessation [None]

NARRATIVE: CASE EVENT DATE: 20250901
